FAERS Safety Report 15966401 (Version 1)
Quarter: 2019Q1

REPORT INFORMATION
  Report Type: Spontaneous
  Country: US (occurrence: US)
  Receive Date: 20190214
  Receipt Date: 20190214
  Transmission Date: 20190418
  Serious: No
  Sender: FDA-Public Use
  Company Number: None

PATIENT
  Age: 61 Year
  Sex: Male
  Weight: 108 kg

DRUGS (4)
  1. ROSUVESTATIN [Concomitant]
  2. IRBESARTAN AND HYDROCHLOROTHIAZIDE [Concomitant]
     Active Substance: HYDROCHLOROTHIAZIDE\IRBESARTAN
  3. BUTORPHANOL [Suspect]
     Active Substance: BUTORPHANOL
     Indication: MIGRAINE
     Dosage: ?          OTHER ROUTE:NASAL SPRAY?
     Dates: start: 20190131, end: 20190213
  4. IBUPROFEN. [Concomitant]
     Active Substance: IBUPROFEN

REACTIONS (3)
  - Product substitution issue [None]
  - Drug ineffective [None]
  - Hangover [None]

NARRATIVE: CASE EVENT DATE: 20190131
